FAERS Safety Report 20635133 (Version 1)
Quarter: 2022Q1

REPORT INFORMATION
  Report Type: Spontaneous
  Country: None (occurrence: IT)
  Receive Date: 20220325
  Receipt Date: 20220325
  Transmission Date: 20220423
  Serious: Yes (Other)
  Sender: FDA-Public Use
  Company Number: IT-MLV Pharma LLC-2127105

PATIENT
  Age: 52 Year
  Sex: Female

DRUGS (1)
  1. BETAMETHASONE DIPROPIONATE [Suspect]
     Active Substance: BETAMETHASONE DIPROPIONATE
     Indication: Hypopituitarism
     Route: 065

REACTIONS (4)
  - Cushing^s syndrome [Recovered/Resolved]
  - Ulcer [Recovered/Resolved]
  - Hypopituitarism [Recovered/Resolved]
  - Munchausen^s syndrome [Unknown]
